FAERS Safety Report 4683134-6 (Version None)
Quarter: 2005Q2

REPORT INFORMATION
  Report Type: 
  Country: None (occurrence: None)
  Receive Date: 20050602
  Receipt Date: 20050307
  Transmission Date: 20051028
  Serious: No
  Sender: FDA-Public Use
  Company Number: USA050392608

PATIENT
  Age: 48 Year
  Sex: Female

DRUGS (2)
  1. CYMBALTA [Suspect]
     Dosage: 60 MG DAY
  2. ADVAIR DISKUS 100/50 [Concomitant]

REACTIONS (3)
  - ARTHRALGIA [None]
  - URINARY RETENTION [None]
  - URINARY TRACT INFECTION [None]
